FAERS Safety Report 10541114 (Version 1)
Quarter: 2014Q4

REPORT INFORMATION
  Report Type: Spontaneous
  Country: US (occurrence: None)
  Receive Date: 20141010
  Receipt Date: 20141010
  Transmission Date: 20150529
  Serious: Yes (Hospitalization)
  Sender: FDA-Public Use
  Company Number: 163-POMAL-14063248

PATIENT
  Age: 76 Year
  Sex: Female
  Weight: 78.02 kg

DRUGS (6)
  1. OXYCODONE (OXYCODONE) (UNKNOWN) (OXYCODONE) [Concomitant]
     Active Substance: OXYCODONE
  2. AMLODIPINE (AMLODIPINE) (UNKNOWN) [Concomitant]
  3. ASPRIN [Concomitant]
     Active Substance: ASPIRIN
  4. POMALYST [Suspect]
     Active Substance: POMALIDOMIDE
     Indication: PLASMA CELL MYELOMA
     Dosage: 1 MG, 21 IN 21 IN 28 D, PO?
     Route: 048
     Dates: start: 20140528
  5. LEVOTHYROXINE (LEVOTHYROXINE) (UNKNOWN) [Concomitant]
  6. GLYBURIDE=METFORMIN (SIL-NORBORAL) (UNKNOWN) [Concomitant]

REACTIONS (1)
  - Anaemia [None]

NARRATIVE: CASE EVENT DATE: 20140616
